FAERS Safety Report 6436826-2 (Version None)
Quarter: 2009Q4

REPORT INFORMATION
  Report Type: 
  Country: None (occurrence: None)
  Receive Date: 20091109
  Receipt Date: 20091027
  Transmission Date: 20100525
  Serious: Yes (Disabling, Other)
  Sender: FDA-Public Use
  Company Number: 2009AP003192

PATIENT
  Age: 68 Year
  Sex: Female
  Weight: 83.9154 kg

DRUGS (3)
  1. ALENDRONATE SODIUM [Suspect]
     Indication: OSTEOPENIA
     Dosage: 70 MG;QW;PO
     Route: 048
     Dates: start: 20090506, end: 20090806
  2. NORETHINDRONE [Concomitant]
  3. ESTRADIOL [Concomitant]

REACTIONS (7)
  - APPARENT DEATH [None]
  - BACK PAIN [None]
  - CHEST PAIN [None]
  - DECREASED APPETITE [None]
  - PAIN IN EXTREMITY [None]
  - VISION BLURRED [None]
  - VOMITING [None]
